FAERS Safety Report 7078556-2 (Version None)
Quarter: 2010Q4

REPORT INFORMATION
  Report Type: 
  Country: None (occurrence: None)
  Receive Date: 20101102
  Receipt Date: 20101027
  Transmission Date: 20110411
  Serious: Yes (Other)
  Sender: FDA-Public Use
  Company Number: JP-SANOFI-AVENTIS-2010SA065609

PATIENT
  Age: 58 Year
  Sex: Male
  Weight: 75.2 kg

DRUGS (12)
  1. ARAVA [Suspect]
     Indication: RHEUMATOID ARTHRITIS
     Route: 048
     Dates: start: 20100203, end: 20100318
  2. ARAVA [Suspect]
     Route: 048
     Dates: start: 20100319, end: 20100427
  3. ARAVA [Suspect]
     Route: 048
     Dates: start: 20100428, end: 20100604
  4. ARAVA [Suspect]
     Route: 048
     Dates: start: 20100708
  5. METHOTREXATE [Suspect]
     Indication: RHEUMATOID ARTHRITIS
     Route: 048
     Dates: start: 20090820, end: 20091015
  6. METHOTREXATE [Suspect]
     Route: 048
     Dates: start: 20091015, end: 20100525
  7. METHOTREXATE [Suspect]
     Route: 048
     Dates: start: 20100525, end: 20100706
  8. FAMOTIDINE [Concomitant]
     Indication: GASTRITIS PROPHYLAXIS
     Route: 048
     Dates: start: 20090820, end: 20100401
  9. MELOXICAM [Concomitant]
     Indication: RHEUMATOID ARTHRITIS
     Route: 048
     Dates: start: 20090820, end: 20100318
  10. PREDNISOLONE [Concomitant]
     Indication: RHEUMATOID ARTHRITIS
     Route: 048
     Dates: start: 20090820, end: 20100622
  11. ACINON [Concomitant]
     Indication: GASTRITIS PROPHYLAXIS
     Route: 048
     Dates: start: 20100402
  12. FOLIAMIN [Concomitant]
     Indication: FOLATE DEFICIENCY
     Route: 048
     Dates: start: 20100604, end: 20100706

REACTIONS (2)
  - ALANINE AMINOTRANSFERASE INCREASED [None]
  - ASPARTATE AMINOTRANSFERASE INCREASED [None]
